FAERS Safety Report 8491993-4 (Version None)
Quarter: 2012Q3

REPORT INFORMATION
  Report Type: 
  Country: None (occurrence: None)
  Receive Date: 20120706
  Receipt Date: 20120629
  Transmission Date: 20120928
  Serious: Yes (Other)
  Sender: FDA-Public Use
  Company Number: PHHY2011JP112757

PATIENT
  Sex: Female

DRUGS (19)
  1. UNIPHLY LA [Concomitant]
     Indication: BRONCHITIS CHRONIC
     Dosage: 400 MG, UNK
     Route: 048
     Dates: start: 20110107
  2. GASTROM [Concomitant]
     Indication: CONSTIPATION
     Dosage: 3.0 G, UNK
     Route: 048
  3. HOKUNALIN [Concomitant]
     Indication: CHRONIC MYELOID LEUKAEMIA
     Dosage: 2 MG, UNK
     Route: 062
     Dates: start: 20110107
  4. MAGMITT [Concomitant]
     Indication: CONSTIPATION
     Dosage: 1500 MG, UNK
  5. TRANSAMINE CAP [Concomitant]
     Indication: GASTROINTESTINAL ANGIODYSPLASIA
     Dosage: 750 MG, UNK
     Route: 048
  6. ADONA [Concomitant]
     Indication: GASTROINTESTINAL ANGIODYSPLASIA
     Dosage: 90 MG, UNK
     Route: 048
  7. TASIGNA [Suspect]
     Indication: CHRONIC MYELOID LEUKAEMIA
     Dosage: 400 MG, DAILY
     Route: 048
     Dates: start: 20110107
  8. HUMAN RED BLOOD CELLS [Concomitant]
  9. MECOBALAMIN [Concomitant]
     Dosage: 1500 UG, UNK
     Route: 048
     Dates: start: 20111206
  10. BISOLVON [Concomitant]
     Indication: BRONCHITIS CHRONIC
     Dosage: 12 MG, UNK
     Route: 048
     Dates: start: 20110322
  11. PENTASA [Concomitant]
     Indication: CONSTIPATION
     Dosage: 1500 MG, UNK
     Route: 048
  12. PREDNISOLONE SODIUM SUCCINATE INJ [Concomitant]
     Dosage: 10 MG, UNK
     Route: 048
     Dates: end: 20110811
  13. SPIRIVA [Concomitant]
     Dosage: 18 UG, UNK
     Dates: start: 20111206
  14. LOXONIN [Concomitant]
     Dosage: 60 MG, UNK
     Route: 048
  15. HALCION [Concomitant]
     Indication: INSOMNIA
     Dosage: 0.25 MG, UNK
     Route: 048
  16. MUCODYNE [Concomitant]
     Indication: BRONCHITIS CHRONIC
     Dosage: 1500 MG, UNK
     Route: 048
     Dates: start: 20110107
  17. PREDNISOLONE SODIUM SUCCINATE INJ [Concomitant]
     Dosage: 20 MG, UNK
     Route: 048
     Dates: start: 20110619
  18. TAMSULOSIN HCL [Concomitant]
     Dosage: 15 MG, UNK
     Route: 048
     Dates: start: 20111206
  19. LEVOFLOXACIN [Concomitant]
     Dosage: 500 MG, UNK
     Dates: start: 20110804

REACTIONS (3)
  - LIPASE INCREASED [None]
  - INTERSTITIAL LUNG DISEASE [None]
  - HAEMATOCHEZIA [None]
